FAERS Safety Report 8443195-5 (Version None)
Quarter: 2012Q2

REPORT INFORMATION
  Report Type: 
  Country: None (occurrence: None)
  Receive Date: 20120617
  Receipt Date: 20120605
  Transmission Date: 20120825
  Serious: Yes (Other)
  Sender: FDA-Public Use
  Company Number: JP-VERTEX PHARMACEUTICALS INC.-AE-2012-008527

PATIENT
  Age: 74 Year
  Sex: Male

DRUGS (4)
  1. TELAVIC (TELAPREVIR) [Suspect]
     Route: 048
     Dates: start: 20120529
  2. PEG-INTRON [Concomitant]
     Route: 058
     Dates: start: 20120529
  3. RIBAVIRIN [Concomitant]
     Route: 048
     Dates: start: 20120529
  4. PEG-INTRON [Concomitant]
     Route: 058
     Dates: start: 20120605

REACTIONS (1)
  - NEUTROPHIL COUNT DECREASED [None]
